FAERS Safety Report 17396978 (Version 1)
Quarter: 2020Q1

REPORT INFORMATION
  Report Type: Spontaneous
  Country: GT (occurrence: GT)
  Receive Date: 20200210
  Receipt Date: 20200210
  Transmission Date: 20200409
  Serious: Yes (Hospitalization, Other)
  Sender: FDA-Public Use
  Company Number: GT-ROCHE-2502258

PATIENT
  Age: 40 Year
  Sex: Male
  Weight: 81.72 kg

DRUGS (8)
  1. DEXAMETHASONE. [Concomitant]
     Active Substance: DEXAMETHASONE
     Indication: ADENOCARCINOMA
     Route: 065
  2. EMEND [Concomitant]
     Active Substance: APREPITANT
     Indication: ADENOCARCINOMA
     Dosage: 1 BOX WITH THREE TABLETS
     Route: 065
  3. AVASTIN [Suspect]
     Active Substance: BEVACIZUMAB
     Route: 065
     Dates: start: 20191120
  4. FLUORACILO [Concomitant]
     Active Substance: FLUOROURACIL
     Indication: ADENOCARCINOMA
     Dosage: 4800 IN INFUSER
     Route: 065
  5. OXALIPLATIN. [Concomitant]
     Active Substance: OXALIPLATIN
     Indication: ADENOCARCINOMA
     Route: 065
  6. ONICIT [Concomitant]
     Active Substance: PALONOSETRON HYDROCHLORIDE
     Indication: ADENOCARCINOMA
     Route: 065
  7. AVASTIN [Suspect]
     Active Substance: BEVACIZUMAB
     Indication: ADENOCARCINOMA
     Route: 065
     Dates: start: 20191120
  8. IRINOTECAN [Concomitant]
     Active Substance: IRINOTECAN
     Indication: ADENOCARCINOMA
     Route: 065

REACTIONS (17)
  - Hypotension [Unknown]
  - Oliguria [Unknown]
  - Weight decreased [Unknown]
  - Ejection fraction decreased [Unknown]
  - Intentional product use issue [Unknown]
  - Heart rate increased [Unknown]
  - Shock [Unknown]
  - Hyperhidrosis [Unknown]
  - Chest pain [Not Recovered/Not Resolved]
  - Tachycardia [Unknown]
  - Hypertension [Unknown]
  - Off label use [Unknown]
  - Oxygen saturation decreased [Unknown]
  - Transaminases increased [Unknown]
  - Respiratory distress [Unknown]
  - Peripheral coldness [Unknown]
  - Blood creatinine increased [Unknown]
